FAERS Safety Report 11807909 (Version 1)
Quarter: 2015Q4

REPORT INFORMATION
  Report Type: Report from Study
  Country: US (occurrence: US)
  Receive Date: 20151207
  Receipt Date: 20151207
  Transmission Date: 20160305
  Serious: Yes (Hospitalization, Other)
  Sender: FDA-Public Use
  Company Number: US-GILEAD-2015-0186303

PATIENT
  Age: 75 Year
  Sex: Male

DRUGS (1)
  1. RANOLAZINE [Suspect]
     Active Substance: RANOLAZINE
     Indication: ANGINA PECTORIS
     Dosage: 1000 MG, UNK
     Route: 048

REACTIONS (7)
  - Infection [Unknown]
  - Myasthenia gravis [Unknown]
  - Hypersensitivity [Unknown]
  - Septic shock [Unknown]
  - Angina pectoris [Unknown]
  - Myocardial infarction [Unknown]
  - Asthenia [Unknown]

NARRATIVE: CASE EVENT DATE: 2013
